FAERS Safety Report 9710113 (Version 5)
Quarter: 2014Q1

REPORT INFORMATION
  Report Type: Report from Study
  Country: FR (occurrence: FR)
  Receive Date: 20131126
  Receipt Date: 20140225
  Transmission Date: 20141002
  Serious: Yes (Hospitalization, Other)
  Sender: FDA-Public Use
  Company Number: PHHO2013FR015341

PATIENT
  Sex: 0

DRUGS (5)
  1. AMN107 [Suspect]
     Indication: CHRONIC MYELOID LEUKAEMIA
     Dosage: 800 MG, BID
     Route: 048
     Dates: start: 20080421, end: 20131218
  2. MOPRAL [Concomitant]
     Indication: GASTROOESOPHAGEAL REFLUX DISEASE
     Dosage: UNK MG QD
     Route: 048
     Dates: start: 20080425
  3. CRESTOR [Concomitant]
     Indication: HYPERCHOLESTEROLAEMIA
     Dosage: 5 MG, QD
     Route: 048
     Dates: start: 20080731
  4. VEINAMITOL [Concomitant]
     Indication: VENOUS INSUFFICIENCY
     Dosage: 3500 MG, QD
     Route: 048
     Dates: start: 20080912
  5. ALLERGODIL [Concomitant]
     Indication: CHRONIC SINUSITIS
     Dosage: UNK, PRN
     Route: 048
     Dates: start: 20130108

REACTIONS (2)
  - Carotid artery stenosis [Recovering/Resolving]
  - Neuropathy peripheral [Not Recovered/Not Resolved]
